FAERS Safety Report 7948101 (Version 2)
Quarter: 2014Q1

REPORT INFORMATION
  Report Type: Spontaneous
  Country: US (occurrence: US)
  Receive Date: 20110517
  Receipt Date: 20140121
  Transmission Date: 20141002
  Serious: Yes (Hospitalization, Other)
  Sender: FDA-Public Use
  Company Number: US-BAYER-2010-002818

PATIENT
  Age: 37 Year
  Sex: Female

DRUGS (5)
  1. YAZ [Suspect]
     Indication: PRODUCT USED FOR UNKNOWN INDICATION
     Dosage: UNK
     Dates: start: 200707, end: 200908
  2. YASMIN [Suspect]
     Indication: PRODUCT USED FOR UNKNOWN INDICATION
     Dosage: UNK
     Dates: start: 200707, end: 200908
  3. PRENATAL [Concomitant]
     Dosage: 1 PO QDAY
  4. METFORMIN [Concomitant]
     Dosage: 500 MG, BID
     Route: 048
  5. BENADRYL [Concomitant]

REACTIONS (3)
  - Gallbladder disorder [None]
  - Cholelithiasis [None]
  - Cholecystitis chronic [None]
